FAERS Safety Report 5017537-7 (Version None)
Quarter: 2006Q2

REPORT INFORMATION
  Report Type: 
  Country: None (occurrence: None)
  Receive Date: 20060601
  Receipt Date: 20060601
  Transmission Date: 20061013
  Serious: Yes (Hospitalization)
  Sender: FDA-Public Use
  Company Number: None

PATIENT
  Sex: Female
  Weight: 57.1 kg

DRUGS (12)
  1. IRINOTECAN HCL [Suspect]
     Indication: GLIOBLASTOMA MULTIFORME
     Dosage: 325MG/M2  DAY 1, 8, 22, 29  IV
     Route: 042
     Dates: start: 20060425
  2. IRINOTECAN HCL [Suspect]
     Indication: GLIOBLASTOMA MULTIFORME
     Dosage: 325MG/M2  DAY 1, 8, 22, 29  IV
     Route: 042
     Dates: start: 20060502
  3. IRINOTECAN HCL [Suspect]
     Indication: GLIOBLASTOMA MULTIFORME
     Dosage: 325MG/M2  DAY 1, 8, 22, 29  IV
     Route: 042
     Dates: start: 20060516
  4. IRINOTECAN HCL [Suspect]
     Indication: GLIOBLASTOMA MULTIFORME
     Dosage: 325MG/M2  DAY 1, 8, 22, 29  IV
     Route: 042
     Dates: start: 20060523
  5. TEMODAR [Suspect]
     Indication: GLIOBLASTOMA MULTIFORME
     Dosage: 200MG/M2   DAYS 1-5   PO
     Route: 048
     Dates: start: 20060425, end: 20060429
  6. DILANTIN [Concomitant]
  7. PEPCID [Concomitant]
  8. DECADRON [Concomitant]
  9. FLORINEF [Concomitant]
  10. MICARDIS [Concomitant]
  11. HUMALOG [Concomitant]
  12. LANTUS [Concomitant]

REACTIONS (6)
  - BRAIN HERNIATION [None]
  - DEPRESSED LEVEL OF CONSCIOUSNESS [None]
  - FATIGUE [None]
  - PYREXIA [None]
  - RESPIRATORY ARREST [None]
  - SOMNOLENCE [None]
